FAERS Safety Report 9400492 (Version 1)
Quarter: 2013Q3

REPORT INFORMATION
  Report Type: Spontaneous
  Country: CN (occurrence: CN)
  Receive Date: 20130715
  Receipt Date: 20130715
  Transmission Date: 20140515
  Serious: Yes (Death)
  Sender: FDA-Public Use
  Company Number: CN-JNJFOC-20130707448

PATIENT
  Sex: 0

DRUGS (2)
  1. DUROGESIC D-TRANS [Suspect]
     Indication: PAIN
     Route: 062
  2. CHAIHUSHUGANSAN [Suspect]
     Indication: HEPATIC CANCER
     Route: 048

REACTIONS (1)
  - Gastric haemorrhage [Fatal]
